FAERS Safety Report 20863162 (Version 3)
Quarter: 2022Q2

REPORT INFORMATION
  Report Type: Spontaneous
  Country: US (occurrence: US)
  Receive Date: 20220523
  Receipt Date: 20220602
  Transmission Date: 20220721
  Serious: Yes (Death)
  Sender: FDA-Public Use
  Company Number: US-BIOMARINAP-US-2022-143366

PATIENT
  Age: 16 Year
  Sex: Female

DRUGS (1)
  1. KUVAN [Suspect]
     Active Substance: SAPROPTERIN DIHYDROCHLORIDE
     Indication: Phenylketonuria
     Dosage: 700 MILLIGRAM, QD
     Route: 048
     Dates: start: 20190810

REACTIONS (1)
  - Injury [Fatal]

NARRATIVE: CASE EVENT DATE: 20220408
